FAERS Safety Report 8152023-7 (Version None)
Quarter: 2012Q1

REPORT INFORMATION
  Report Type: 
  Country: None (occurrence: None)
  Receive Date: 20120214
  Receipt Date: 20120207
  Transmission Date: 20120608
  Serious: Yes (Hospitalization)
  Sender: FDA-Public Use
  Company Number: 1000027590

PATIENT
  Age: 83 Year
  Sex: Male

DRUGS (9)
  1. AFIPRAN (METOCLOPRAMIDE HYDROCHLORIDE) (METOCLOPRAMIDE HYDROCHLORIDE) [Concomitant]
  2. NITROGLYCERIN [Concomitant]
  3. CARVEDILOL HEXAL (CARVEDILOL) (CARVEDILOL) [Concomitant]
  4. CAPTOPRIL (CAPTOPRIL) (CAPTOPRIL) [Concomitant]
  5. SOBRIL (OXAZEPAM) (OXAZEPAM) [Concomitant]
  6. ZOPIKLON MYLAN (ZOPICLONE) (ZOPICLONE) [Concomitant]
  7. CITALOPRAM HYDROBROMIDE [Suspect]
     Indication: DEPRESSION
     Dosage: 20 MG (20 MG, IN EVENING), ORAL ; 40-80 MG IN THE MORNING BY MISTAKE + 20 MG IN THE EVENING,ORAL
     Route: 048
     Dates: start: 20110901, end: 20111129
  8. ALBYL-E (ACETYLSALICYLIC ACID) (ACETYLSALICYLIC ACID) [Concomitant]
  9. SIMVASTATIN [Concomitant]

REACTIONS (7)
  - DRUG LEVEL ABOVE THERAPEUTIC [None]
  - BRADYCARDIA [None]
  - INCORRECT DRUG DOSAGE FORM ADMINISTERED [None]
  - DYSKINESIA [None]
  - OVERDOSE [None]
  - SEROTONIN SYNDROME [None]
  - ARRHYTHMIA [None]
